FAERS Safety Report 7058570-3 (Version None)
Quarter: 2010Q4

REPORT INFORMATION
  Report Type: 
  Country: None (occurrence: None)
  Receive Date: 20101022
  Receipt Date: 20101018
  Transmission Date: 20110411
  Serious: Yes (Other)
  Sender: FDA-Public Use
  Company Number: A0876347A

PATIENT
  Age: 72 Year
  Sex: Female

DRUGS (14)
  1. ADVAIR DISKUS 100/50 [Suspect]
     Indication: ASTHMA
     Dosage: 1PUFF TWICE PER DAY
     Route: 055
     Dates: start: 19980101
  2. MURO 128 [Concomitant]
  3. PREDNISOLONE ACETATE [Concomitant]
  4. BRIMONIDINE TARTRATE [Concomitant]
  5. ALBUTEROL [Concomitant]
  6. NEBULIZER [Concomitant]
  7. CALCIUM [Concomitant]
  8. ASCORBIC ACID [Concomitant]
  9. VITAMIN E [Concomitant]
  10. GLUCOSAMINE [Concomitant]
  11. MULTI-VITAMIN [Concomitant]
  12. ASPIRIN [Concomitant]
  13. PREMPRO [Concomitant]
  14. ALENDRONATE SODIUM [Concomitant]

REACTIONS (3)
  - CATARACT OPERATION [None]
  - CORNEAL OPERATION [None]
  - EYE DISORDER [None]
